APPROVED DRUG PRODUCT: SYNERCID
Active Ingredient: DALFOPRISTIN; QUINUPRISTIN
Strength: 350MG/VIAL;150MG/VIAL
Dosage Form/Route: INJECTABLE;INTRAVENOUS
Application: N050748 | Product #001
Applicant: KING PHARMACEUTICALS INC
Approved: Sep 21, 1999 | RLD: Yes | RS: No | Type: DISCN